FAERS Safety Report 17889280 (Version 1)
Quarter: 2020Q2

REPORT INFORMATION
  Report Type: Spontaneous
  Country: US (occurrence: US)
  Receive Date: 20200612
  Receipt Date: 20200612
  Transmission Date: 20200714
  Serious: No
  Sender: FDA-Public Use
  Company Number: US-HIKMA PHARMACEUTICALS USA INC.-US-H14001-20-00358

PATIENT
  Age: 51 Year
  Sex: Male
  Weight: 86.1 kg

DRUGS (6)
  1. FLUTICASONE. [Suspect]
     Active Substance: FLUTICASONE
     Dosage: 50 MCG IN EACH NOSTRIL
     Dates: start: 201910, end: 201911
  2. FLUTICASONE. [Suspect]
     Active Substance: FLUTICASONE
     Dosage: 100 MCG IN EACH NOSTRIL
     Dates: start: 201911
  3. FLUTICASONE. [Suspect]
     Active Substance: FLUTICASONE
     Indication: COUGH
     Dosage: 100 MCG EACH NOSTRIL
     Dates: start: 2018, end: 2019
  4. FLUTICASONE. [Suspect]
     Active Substance: FLUTICASONE
     Dosage: 50 MCG EACH NOSTRIL
     Dates: start: 2019, end: 201910
  5. LISINOPRIL. [Concomitant]
     Active Substance: LISINOPRIL
     Indication: PRODUCT USED FOR UNKNOWN INDICATION
     Route: 065
  6. FLUTICASONE. [Suspect]
     Active Substance: FLUTICASONE
     Dosage: 100 MCG IN EACH NOSTRIL
     Dates: start: 201911, end: 201911

REACTIONS (3)
  - Drug effective for unapproved indication [Not Recovered/Not Resolved]
  - Drug ineffective for unapproved indication [Unknown]
  - Incorrect product administration duration [Recovered/Resolved]
